FAERS Safety Report 21309097 (Version 3)
Quarter: 2023Q1

REPORT INFORMATION
  Report Type: Spontaneous
  Country: JP (occurrence: JP)
  Receive Date: 20220908
  Receipt Date: 20230302
  Transmission Date: 20230417
  Serious: Yes (Death, Other)
  Sender: FDA-Public Use
  Company Number: JP-BAYER-2022A122297

PATIENT
  Age: 61 Year
  Sex: Male
  Weight: 69 kg

DRUGS (8)
  1. XOFIGO [Suspect]
     Active Substance: RADIUM RA-223 DICHLORIDE
     Indication: Hormone-refractory prostate cancer
     Dosage: 60 KBQ/KG
     Dates: start: 20220316, end: 20220316
  2. XOFIGO [Suspect]
     Active Substance: RADIUM RA-223 DICHLORIDE
     Indication: Metastases to bone
     Dosage: 60 KBQ/KG
     Dates: start: 20220413, end: 20220413
  3. PREDONINE [Concomitant]
     Active Substance: PREDNISOLONE
     Dosage: DAILY DOSE 10 MG
     Route: 048
     Dates: end: 20220413
  4. VONOPRAZAN FUMARATE [Concomitant]
     Active Substance: VONOPRAZAN FUMARATE
     Dosage: DAILY DOSE 10 MG
     Route: 048
     Dates: end: 20220413
  5. TRAMADOL HYDROCHLORIDE [Concomitant]
     Active Substance: TRAMADOL HYDROCHLORIDE
     Dosage: DAILY DOSE 200 MG
     Route: 048
     Dates: end: 20220610
  6. CALCIUM CARBONATE\CHOLECALCIFEROL\MAGNESIUM CARBONATE [Concomitant]
     Active Substance: CALCIUM CARBONATE\CHOLECALCIFEROL\MAGNESIUM CARBONATE
     Dosage: DAILY DOSE 2 DF
     Route: 048
     Dates: end: 20220610
  7. DENOSUMAB [Concomitant]
     Active Substance: DENOSUMAB
     Dosage: DAILY DOSE 120 MG
     Route: 058
     Dates: end: 20220810
  8. MIRABEGRON [Concomitant]
     Active Substance: MIRABEGRON
     Dosage: DAILY DOSE 50 MG
     Route: 048
     Dates: start: 20220413

REACTIONS (4)
  - Hormone-refractory prostate cancer [Fatal]
  - Metastases to bone [None]
  - Pyrexia [Recovering/Resolving]
  - Off label use [None]

NARRATIVE: CASE EVENT DATE: 20220426
